FAERS Safety Report 19507078 (Version 8)
Quarter: 2022Q3

REPORT INFORMATION
  Report Type: Spontaneous
  Country: DE (occurrence: DE)
  Receive Date: 20210708
  Receipt Date: 20220726
  Transmission Date: 20221026
  Serious: Yes (Hospitalization, Other)
  Sender: FDA-Public Use
  Company Number: DE-MYLANLABS-2021M1039397

PATIENT
  Sex: Male
  Weight: 80 kg

DRUGS (93)
  1. VALSARTAN [Suspect]
     Active Substance: VALSARTAN
     Indication: Hypertension
     Dosage: 320 MILLIGRAM, QD (MORNING)
     Route: 065
     Dates: start: 20160419
  2. VALSARTAN [Suspect]
     Active Substance: VALSARTAN
     Dosage: 320 MILLIGRAM, QD (MORNING)
     Route: 065
     Dates: start: 20160716
  3. VALSARTAN [Suspect]
     Active Substance: VALSARTAN
     Dosage: 320 MILLIGRAM, QD (MORNING)
     Route: 065
     Dates: start: 20161103
  4. VALSARTAN [Suspect]
     Active Substance: VALSARTAN
     Dosage: 320 MILLIGRAM, QD (MORNING)
     Route: 065
     Dates: start: 20170303
  5. VALSARTAN [Suspect]
     Active Substance: VALSARTAN
     Dosage: 320 MILLIGRAM, QD (MORNING)
     Route: 065
     Dates: start: 20170303
  6. VALSARTAN [Suspect]
     Active Substance: VALSARTAN
     Dosage: 320 MILLIGRAM, QD (MORNING)
     Route: 065
     Dates: start: 20170614
  7. VALSARTAN [Suspect]
     Active Substance: VALSARTAN
     Dosage: 320 MILLIGRAM, QD (MORNING)
     Route: 065
     Dates: start: 20170914
  8. VALSARTAN [Suspect]
     Active Substance: VALSARTAN
     Dosage: 320 MILLIGRAM, QD (MORNING)
     Route: 065
     Dates: start: 20171103
  9. VALSARTAN [Suspect]
     Active Substance: VALSARTAN
     Indication: Product used for unknown indication
     Dosage: UNK UNK, QD 1-0-0
     Route: 065
     Dates: start: 20201016
  10. VALSARTAN [Suspect]
     Active Substance: VALSARTAN
     Dosage: UNK, QD 1-0-0
     Route: 065
     Dates: start: 20201017
  11. VALSARTAN [Suspect]
     Active Substance: VALSARTAN
     Dosage: UNK, QD 1-0-0
     Route: 065
     Dates: start: 20201017
  12. VALSARTAN [Suspect]
     Active Substance: VALSARTAN
     Dosage: UNK, QD 1-0-0
     Route: 065
     Dates: start: 20201018
  13. VALSARTAN [Suspect]
     Active Substance: VALSARTAN
     Dosage: UNK, QD 1-0-0
     Route: 065
     Dates: start: 20201019
  14. VALSARTAN [Suspect]
     Active Substance: VALSARTAN
     Dosage: UNK, QD 1-0-0
     Route: 065
     Dates: start: 20201020
  15. VALSARTAN [Suspect]
     Active Substance: VALSARTAN
     Dosage: UNK, QD 1-0-0
     Route: 065
     Dates: start: 20201021
  16. TORSEMIDE [Suspect]
     Active Substance: TORSEMIDE
     Indication: Product used for unknown indication
     Dosage: UNK, QD 1-0-0
     Route: 065
     Dates: start: 20201016
  17. TORSEMIDE [Suspect]
     Active Substance: TORSEMIDE
     Dosage: UNK, QD 1-0-0
     Route: 065
     Dates: start: 20201017
  18. TORSEMIDE [Suspect]
     Active Substance: TORSEMIDE
     Dosage: UNK, QD 1-0-0
     Route: 065
     Dates: start: 20201018
  19. TORSEMIDE [Suspect]
     Active Substance: TORSEMIDE
     Dosage: UNK, QD 1-0-0
     Route: 065
     Dates: start: 20201019
  20. TORSEMIDE [Suspect]
     Active Substance: TORSEMIDE
     Dosage: UNK, QD 1-0-0
     Route: 065
     Dates: start: 20201020
  21. TORSEMIDE [Suspect]
     Active Substance: TORSEMIDE
     Dosage: UNK, QD 1-0-0
     Route: 065
     Dates: start: 20201021
  22. TORSEMIDE [Suspect]
     Active Substance: TORSEMIDE
     Dosage: UNK, QD 1-0-0
     Route: 065
     Dates: start: 20180110, end: 20180118
  23. PANTOPRAZOLE [Suspect]
     Active Substance: PANTOPRAZOLE
     Indication: Product used for unknown indication
     Dosage: UNK, QD 1-0-0
     Route: 065
     Dates: start: 20201016
  24. PANTOPRAZOLE [Suspect]
     Active Substance: PANTOPRAZOLE
     Dosage: UNK, QD 1-0-0
     Route: 065
     Dates: start: 20201017
  25. PANTOPRAZOLE [Suspect]
     Active Substance: PANTOPRAZOLE
     Dosage: UNK, QD 1-0-0
     Route: 065
     Dates: start: 20201018
  26. PANTOPRAZOLE [Suspect]
     Active Substance: PANTOPRAZOLE
     Dosage: UNK, QD
     Route: 065
     Dates: start: 20201019
  27. PANTOPRAZOLE [Suspect]
     Active Substance: PANTOPRAZOLE
     Dosage: UNK, QD
     Route: 065
     Dates: start: 20201020
  28. PANTOPRAZOLE [Suspect]
     Active Substance: PANTOPRAZOLE
     Dosage: UNK, QD
     Route: 065
     Dates: start: 20201021
  29. PANTOPRAZOLE [Suspect]
     Active Substance: PANTOPRAZOLE
     Dosage: UNK, QD 0-0-1  40
     Route: 065
     Dates: start: 20180110, end: 20180117
  30. PANTOPRAZOLE [Suspect]
     Active Substance: PANTOPRAZOLE
     Dosage: 1-0
     Route: 065
     Dates: start: 20190918, end: 20190919
  31. VALSARTAN [Suspect]
     Active Substance: VALSARTAN
     Indication: Hypertension
     Dosage: 320 MILLIGRAM
     Route: 048
  32. VALSARTAN [Suspect]
     Active Substance: VALSARTAN
     Dosage: 100 MILLIGRAM, QD
     Route: 048
     Dates: start: 20190910
  33. VALSARTAN [Suspect]
     Active Substance: VALSARTAN
     Dosage: 8 MILLIGRAM, QD
     Route: 048
     Dates: start: 20190915
  34. BISOPROLOL [Suspect]
     Active Substance: BISOPROLOL
     Indication: Product used for unknown indication
     Dosage: UNK UNK, QD 0-0-1
     Route: 065
     Dates: start: 20201016
  35. BISOPROLOL [Suspect]
     Active Substance: BISOPROLOL
     Dosage: UNK, QD 0-0-1
     Route: 065
     Dates: start: 20201017
  36. BISOPROLOL [Suspect]
     Active Substance: BISOPROLOL
     Dosage: UNK, QD 0-0-1
     Route: 065
     Dates: start: 20201018
  37. BISOPROLOL [Suspect]
     Active Substance: BISOPROLOL
     Dosage: UNK, QD 0-0-1
     Route: 065
     Dates: start: 20201019
  38. BISOPROLOL [Suspect]
     Active Substance: BISOPROLOL
     Dosage: UNK, QD 0-0-1
     Route: 065
     Dates: start: 20201020
  39. BISOPROLOL [Suspect]
     Active Substance: BISOPROLOL
     Dosage: UNK, QD 0-0-1
     Route: 065
     Dates: start: 20201021
  40. BISOPROLOL [Suspect]
     Active Substance: BISOPROLOL
     Dosage: UNK 0.5-0-0
     Route: 065
     Dates: start: 20180102, end: 20180118
  41. ALLOPURINOL [Suspect]
     Active Substance: ALLOPURINOL
     Indication: Product used for unknown indication
     Dosage: UNK  0.5-0-0
     Route: 065
     Dates: start: 20201016
  42. ALLOPURINOL [Suspect]
     Active Substance: ALLOPURINOL
     Dosage: UNK 0.5-0-0
     Route: 065
     Dates: start: 20201017
  43. ALLOPURINOL [Suspect]
     Active Substance: ALLOPURINOL
     Dosage: UNK 0.5-0-0
     Route: 065
     Dates: start: 20201018
  44. ALLOPURINOL [Suspect]
     Active Substance: ALLOPURINOL
     Dosage: UNK 0.5-0-0
     Route: 065
     Dates: start: 20201019
  45. ALLOPURINOL [Suspect]
     Active Substance: ALLOPURINOL
     Dosage: UNK 0.5-0-0
     Route: 065
     Dates: start: 20201020
  46. ALLOPURINOL [Suspect]
     Active Substance: ALLOPURINOL
     Dosage: UNK 0.5-0-0
     Route: 065
     Dates: start: 20201021
  47. ALLOPURINOL [Suspect]
     Active Substance: ALLOPURINOL
     Dosage: UNK  1-0-0
     Route: 065
     Dates: start: 20180102, end: 20180118
  48. ALLOPURINOL [Suspect]
     Active Substance: ALLOPURINOL
     Dosage: UNK 1/2-0-0
     Route: 065
     Dates: start: 20190910, end: 20190914
  49. ALLOPURINOL [Suspect]
     Active Substance: ALLOPURINOL
     Dosage: UNK 1/2-0-1
     Route: 065
     Dates: start: 20190915, end: 20190916
  50. ALLOPURINOL [Suspect]
     Active Substance: ALLOPURINOL
     Dosage: UNK 1/2-0-0
     Route: 065
     Dates: start: 20190917, end: 20190919
  51. FOLIC ACID [Suspect]
     Active Substance: FOLIC ACID
     Indication: Product used for unknown indication
     Dosage: UNK, QD 1-0-0
     Route: 065
     Dates: start: 20201019
  52. XARELTO [Suspect]
     Active Substance: RIVAROXABAN
     Indication: Product used for unknown indication
     Dosage: UNK (1-0-0)
     Route: 065
     Dates: end: 20201016
  53. XARELTO [Suspect]
     Active Substance: RIVAROXABAN
     Dosage: 1-0-0
     Route: 065
     Dates: start: 20190910, end: 20190912
  54. XARELTO [Suspect]
     Active Substance: RIVAROXABAN
     Dosage: 1-0-0
     Route: 065
     Dates: start: 20190914, end: 20190919
  55. ATORVASTATIN [Suspect]
     Active Substance: ATORVASTATIN
     Indication: Product used for unknown indication
     Dosage: UNK UNK, QD 0-0-1
     Route: 065
     Dates: start: 20201016
  56. ATORVASTATIN [Suspect]
     Active Substance: ATORVASTATIN
     Dosage: UNK UNK, QD 0-0-1
     Route: 065
     Dates: start: 20201017
  57. ATORVASTATIN [Suspect]
     Active Substance: ATORVASTATIN
     Dosage: UNK UNK, QD 0-0-1
     Route: 065
     Dates: start: 20201018
  58. ATORVASTATIN [Suspect]
     Active Substance: ATORVASTATIN
     Dosage: UNK UNK, QD 0-0-1
     Route: 065
     Dates: start: 20201019
  59. ATORVASTATIN [Suspect]
     Active Substance: ATORVASTATIN
     Dosage: UNK UNK, QD 0-0-1
     Route: 065
     Dates: start: 20201020
  60. ATORVASTATIN [Suspect]
     Active Substance: ATORVASTATIN
     Dosage: UNK UNK, QD 0-0-1
     Route: 065
     Dates: start: 20201021
  61. ATORVASTATIN [Suspect]
     Active Substance: ATORVASTATIN
     Dosage: UNK, QD 0-0-1
     Route: 065
     Dates: start: 20180102, end: 20180117
  62. SPIRONOLACTONE [Suspect]
     Active Substance: SPIRONOLACTONE
     Indication: Product used for unknown indication
     Dosage: UNK
     Route: 065
     Dates: end: 20201016
  63. CETIRIZINE HYDROCHLORIDE [Suspect]
     Active Substance: CETIRIZINE HYDROCHLORIDE
     Indication: Product used for unknown indication
     Dosage: UNK, QD 0-0-1
     Route: 065
     Dates: start: 20201016
  64. CETIRIZINE HYDROCHLORIDE [Suspect]
     Active Substance: CETIRIZINE HYDROCHLORIDE
     Dosage: UNK, QD 0-0-1
     Route: 065
     Dates: start: 20201017
  65. CETIRIZINE HYDROCHLORIDE [Suspect]
     Active Substance: CETIRIZINE HYDROCHLORIDE
     Dosage: UNK, QD 0-0-1
     Route: 065
     Dates: start: 20201018
  66. CETIRIZINE HYDROCHLORIDE [Suspect]
     Active Substance: CETIRIZINE HYDROCHLORIDE
     Dosage: UNK, QD 0-0-1
     Route: 065
     Dates: start: 20201019
  67. CETIRIZINE HYDROCHLORIDE [Suspect]
     Active Substance: CETIRIZINE HYDROCHLORIDE
     Dosage: UNK, QD 0-0-1
     Route: 065
     Dates: start: 20201020
  68. CETIRIZINE HYDROCHLORIDE [Suspect]
     Active Substance: CETIRIZINE HYDROCHLORIDE
     Dosage: UNK, QD 0-0-1
     Route: 065
     Dates: start: 20201021
  69. VALERIAN [Suspect]
     Active Substance: VALERIAN
     Indication: Product used for unknown indication
     Dosage: UNK
     Route: 065
     Dates: start: 20201017
  70. VALERIAN [Suspect]
     Active Substance: VALERIAN
     Dosage: UNK
     Route: 065
     Dates: start: 20201018
  71. ASPIRIN [Suspect]
     Active Substance: ASPIRIN
     Indication: Product used for unknown indication
     Dosage: UNK, QD 1-0-0
     Route: 065
     Dates: start: 20180102, end: 20180118
  72. ASPIRIN [Suspect]
     Active Substance: ASPIRIN
     Dosage: UNK, QD 1-0-0
     Route: 065
     Dates: start: 20190911
  73. VALSARTAN [Suspect]
     Active Substance: VALSARTAN
     Indication: Product used for unknown indication
     Dosage: UNK (0.5-0-0:MIN DOSE FREQUENCY AND 1-0-0: MAX DOSE FREQUENCY)
     Route: 065
     Dates: start: 20180102, end: 20180118
  74. AMLODIPINE BESYLATE [Suspect]
     Active Substance: AMLODIPINE BESYLATE
     Indication: Product used for unknown indication
     Dosage: UNK, BID (1-0-1) PAUSE
     Route: 065
     Dates: start: 20180102, end: 20180110
  75. AMLODIPINE BESYLATE [Suspect]
     Active Substance: AMLODIPINE BESYLATE
     Dosage: 1/2-0-1
     Route: 065
     Dates: start: 20190910, end: 20190916
  76. AMLODIPINE BESYLATE [Suspect]
     Active Substance: AMLODIPINE BESYLATE
     Dosage: 0-0-1
     Route: 065
     Dates: start: 20190917, end: 20190919
  77. RANEXA [Suspect]
     Active Substance: RANOLAZINE
     Indication: Product used for unknown indication
     Dosage: UNK, BID 1-0-1
     Route: 065
     Dates: start: 20180102, end: 20180118
  78. FERROUS GLUCONATE [Suspect]
     Active Substance: FERROUS GLUCONATE
     Indication: Product used for unknown indication
     Dosage: UNK, QD 0-1-0
     Route: 065
     Dates: start: 20180110, end: 20180117
  79. ZOPICLONE [Suspect]
     Active Substance: ZOPICLONE
     Indication: Product used for unknown indication
     Dosage: UNK, QD 0-0-1
     Route: 065
     Dates: start: 20180110, end: 20180116
  80. VALSARTAN [Suspect]
     Active Substance: VALSARTAN
     Indication: Product used for unknown indication
     Dosage: UNK
     Route: 065
  81. BISOPROLOL [Concomitant]
     Active Substance: BISOPROLOL
     Dosage: 1/2-0-1
     Route: 065
     Dates: start: 20190910, end: 20190919
  82. RANEXA [Concomitant]
     Active Substance: RANOLAZINE
     Dosage: UNK UNK, BID
     Route: 065
     Dates: start: 20190910, end: 20190915
  83. RANEXA [Concomitant]
     Active Substance: RANOLAZINE
     Dosage: 2-0-2
     Route: 065
     Dates: start: 20190916, end: 20190919
  84. Melperona [Concomitant]
     Dosage: 0-0-0-1
     Route: 065
     Dates: start: 20190910, end: 20190916
  85. Melperona [Concomitant]
     Dosage: 0-0-0-2
     Route: 065
     Dates: start: 20190917, end: 20190919
  86. FOLIC ACID [Concomitant]
     Active Substance: FOLIC ACID
     Dosage: 1-0-0
     Route: 065
     Dates: start: 20190910, end: 20190916
  87. IRON [Concomitant]
     Active Substance: IRON
     Dosage: PAUSED
     Route: 065
     Dates: end: 20190910
  88. PLAVIX [Concomitant]
     Active Substance: CLOPIDOGREL BISULFATE
     Dosage: 1-0-0
     Route: 065
     Dates: start: 20190914, end: 20190919
  89. POTASSIUM CHLORIDE [Concomitant]
     Active Substance: POTASSIUM CHLORIDE
     Dosage: 1-0-1 FOR THREE DAYS
     Route: 065
     Dates: start: 20190916, end: 20190919
  90. FUROSEMIDE [Concomitant]
     Active Substance: FUROSEMIDE
     Dosage: 40-40-0 MG
     Route: 042
     Dates: start: 20190910, end: 20190916
  91. FUROSEMIDE [Concomitant]
     Active Substance: FUROSEMIDE
     Dosage: 1-1/2-0
     Route: 065
     Dates: start: 20190917, end: 20190919
  92. CANDESARTAN [Concomitant]
     Active Substance: CANDESARTAN
     Dosage: 1-0-0
     Route: 065
     Dates: start: 20190917, end: 20190919
  93. FOLIC ACID [Concomitant]
     Active Substance: FOLIC ACID
     Dosage: 1-0-0
     Route: 065
     Dates: start: 20190917, end: 20190919

REACTIONS (17)
  - Anaemia [Unknown]
  - Pallor [Unknown]
  - Mental impairment [Unknown]
  - Anxiety disorder [Unknown]
  - Chronic kidney disease [Unknown]
  - Impaired quality of life [Unknown]
  - Sleep disorder [Unknown]
  - Fear of disease [Unknown]
  - Depression [Unknown]
  - Stress [Unknown]
  - Nightmare [Unknown]
  - Nervousness [Unknown]
  - Hyperhidrosis [Unknown]
  - Dyspnoea [Not Recovered/Not Resolved]
  - Fatigue [Unknown]
  - Restlessness [Unknown]
  - Rectal polyp [Unknown]
